FAERS Safety Report 19372631 (Version 1)
Quarter: 2021Q2

REPORT INFORMATION
  Report Type: Spontaneous
  Country: US (occurrence: US)
  Receive Date: 20210603
  Receipt Date: 20210603
  Transmission Date: 20210717
  Serious: No
  Sender: FDA-Public Use
  Company Number: None

PATIENT
  Age: 71 Year
  Sex: Male
  Weight: 91 kg

DRUGS (2)
  1. SULFAMETHOXAZOLE/TRIMETHOPRIM (SULFAMETHOXAZOLE 800MG/TRIMETHOPRIM 160 [Suspect]
     Active Substance: SULFAMETHOXAZOLE\TRIMETHOPRIM
     Indication: PROSTATITIS
     Dates: start: 20210204, end: 20210301
  2. ACETAMINOPHEN (ACETAMINOPHEN 325MG TAB) [Suspect]
     Active Substance: ACETAMINOPHEN
     Indication: PROSTATITIS
     Dates: start: 20210225, end: 20210316

REACTIONS (4)
  - Hepatic steatosis [None]
  - Hepatotoxicity [None]
  - Hyperbilirubinaemia [None]
  - Liver injury [None]

NARRATIVE: CASE EVENT DATE: 20210316
